FAERS Safety Report 19868549 (Version 2)
Quarter: 2021Q3

REPORT INFORMATION
  Report Type: Report from Study
  Country: US (occurrence: US)
  Receive Date: 20210922
  Receipt Date: 20210930
  Transmission Date: 20211014
  Serious: Yes (Hospitalization)
  Sender: FDA-Public Use
  Company Number: US-ROCHE-2791102

PATIENT
  Age: 72 Year
  Sex: Male
  Weight: 75.6 kg

DRUGS (21)
  1. TOCILIZUMAB. [Suspect]
     Active Substance: TOCILIZUMAB
     Indication: B-CELL LYMPHOMA
     Route: 042
     Dates: start: 20210310
  2. FLOMAX [Concomitant]
     Active Substance: TAMSULOSIN HYDROCHLORIDE
  3. ONDANSETRON [Concomitant]
     Active Substance: ONDANSETRON
     Route: 048
     Dates: start: 20210319, end: 20210414
  4. MEPERIDINE [Concomitant]
     Active Substance: MEPERIDINE
     Route: 042
     Dates: start: 20210309, end: 20210312
  5. ASPIRIN. [Concomitant]
     Active Substance: ASPIRIN
     Route: 048
     Dates: start: 20201214
  6. AMLODIPINE [Concomitant]
     Active Substance: AMLODIPINE BESYLATE
     Dates: start: 202012
  7. PLAVIX [Concomitant]
     Active Substance: CLOPIDOGREL BISULFATE
     Route: 048
     Dates: start: 20210309
  8. LOVENOX [Concomitant]
     Active Substance: ENOXAPARIN SODIUM
     Indication: DEEP VEIN THROMBOSIS
     Dates: start: 20210314
  9. LEVOFLOXACIN. [Concomitant]
     Active Substance: LEVOFLOXACIN
     Dates: start: 20210323
  10. METOPROLOL TARTRATE. [Concomitant]
     Active Substance: METOPROLOL TARTRATE
     Route: 048
     Dates: start: 20210319, end: 20210326
  11. CYCLOPHOSPHAMIDE. [Suspect]
     Active Substance: CYCLOPHOSPHAMIDE
     Indication: B-CELL LYMPHOMA
     Dosage: ON 09/MAR/2021, MOST RECENT DOSE (1410 MG) PRIOR TO SAE/AE ONSET WAS ADMINISTERED.
     Route: 042
     Dates: start: 20210309
  12. PREDNISONE. [Suspect]
     Active Substance: PREDNISONE
     Indication: B-CELL LYMPHOMA
     Dosage: ON 09?MAR?2021, MOST RECENT DOSE (100 MG) PRIOR TO SAE/AE ONSET WAS ADMINISTERED.
     Route: 048
     Dates: start: 20210309
  13. ALLOPURINOL. [Concomitant]
     Active Substance: ALLOPURINOL
     Route: 048
     Dates: start: 20210308, end: 20210311
  14. RBC TRANSFUSION [Concomitant]
     Route: 042
     Dates: start: 20210315, end: 20210315
  15. MOSUNETUZUMAB. [Suspect]
     Active Substance: MOSUNETUZUMAB
     Indication: B-CELL LYMPHOMA
     Dosage: ON 09/MAR/2021, MOST RECENT DOSE (1MG) PRIOR TO SAE/AE ONSET WAS ADMINISTERED. ?DOSE OF MOSNETUZUMAB
     Route: 042
     Dates: start: 20210309
  16. DOXORUBICIN [Suspect]
     Active Substance: DOXORUBICIN
     Indication: B-CELL LYMPHOMA
     Dosage: ON 09/MAR/2021, MOST RECENT DOSE ( 94 MG) PRIOR TO SAE/AE ONSET WAS ADMINISTERED.
     Route: 042
     Dates: start: 20210309
  17. ATORVASTATIN [Concomitant]
     Active Substance: ATORVASTATIN
     Route: 048
     Dates: start: 202012
  18. MEROPENEM. [Concomitant]
     Active Substance: MEROPENEM
     Route: 042
     Dates: start: 20210316, end: 20210319
  19. POLATUZUMAB VEDOTIN. [Suspect]
     Active Substance: POLATUZUMAB VEDOTIN
     Indication: B-CELL LYMPHOMA
     Dosage: ON 09/MAR/2021, MOST RECENT DOSE (136.4 MG) PRIOR TO SAE/AE ONSET WAS ADMINISTERED.
     Route: 042
     Dates: start: 20210309
  20. ENOXAPARIN [Concomitant]
     Active Substance: ENOXAPARIN
     Route: 030
     Dates: start: 20210310, end: 20210319
  21. NITROGLYCERIN. [Concomitant]
     Active Substance: NITROGLYCERIN
     Route: 062
     Dates: start: 20210309, end: 20210407

REACTIONS (2)
  - Neurotoxicity [Recovered/Resolved]
  - Diverticulum intestinal haemorrhagic [Recovered/Resolved]

NARRATIVE: CASE EVENT DATE: 20210309
